FAERS Safety Report 6898613-0 (Version None)
Quarter: 2010Q3

REPORT INFORMATION
  Report Type: 
  Country: None (occurrence: None)
  Receive Date: 20100802
  Receipt Date: 20071103
  Transmission Date: 20110219
  Serious: No
  Sender: FDA-Public Use
  Company Number: US-PFIZER INC-2007093616

PATIENT
  Sex: Female
  Weight: 51.7 kg

DRUGS (4)
  1. LYRICA [Suspect]
     Indication: HERPES ZOSTER
     Dates: start: 20071001
  2. PERCOCET [Suspect]
     Indication: HERPES ZOSTER
     Dates: start: 20071001
  3. LISINOPRIL [Concomitant]
  4. CELEBREX [Concomitant]

REACTIONS (1)
  - DIARRHOEA [None]
